FAERS Safety Report 9457257 (Version 3)
Quarter: 2014Q2

REPORT INFORMATION
  Report Type: Spontaneous
  Country: CN (occurrence: CN)
  Receive Date: 20130814
  Receipt Date: 20140516
  Transmission Date: 20141212
  Serious: Yes (Hospitalization, Other)
  Sender: FDA-Public Use
  Company Number: PHHY2013CN085810

PATIENT
  Age: 81 Year
  Sex: Female
  Weight: 75 kg

DRUGS (8)
  1. ZOMETA [Suspect]
     Indication: BONE DISORDER
     Dosage: 4 MG, ONCE EVERY SIX MONTHS
     Route: 042
     Dates: start: 20130729, end: 20130821
  2. ZOMETA [Suspect]
     Indication: OSTEOPOROSIS
  3. FEMARA [Suspect]
     Indication: BREAST CANCER
     Dosage: 2.5 MG DAILY
     Route: 048
     Dates: start: 20100801, end: 20130821
  4. FEMARA [Suspect]
     Indication: BREAST CANCER
  5. LEVAMLODIPINE MALEATE [Concomitant]
     Indication: HYPERTENSION
     Dosage: 2.5 MG, PER DAY
     Route: 048
  6. OLMESARTAN MEDOXOMIL [Concomitant]
     Indication: HYPERTENSION
     Dosage: 20 MG, PER DAY
     Route: 048
  7. TORASEMIDE [Concomitant]
     Indication: HYPERTENSION
     Dosage: 2.5 MG,  PER DAY
     Route: 048
  8. BETALOC [Concomitant]
     Indication: HYPERTENSION
     Dosage: 12.5 MG, PER DAY
     Route: 048

REACTIONS (5)
  - Lymphopenia [Recovering/Resolving]
  - Thrombocytopenia [Recovering/Resolving]
  - Pyrexia [Recovering/Resolving]
  - Bronchitis [Recovering/Resolving]
  - Splenomegaly [Unknown]
